FAERS Safety Report 7774746-1 (Version None)
Quarter: 2011Q3

REPORT INFORMATION
  Report Type: 
  Country: None (occurrence: None)
  Receive Date: 20110923
  Receipt Date: 20110919
  Transmission Date: 20111222
  Serious: Yes (Hospitalization)
  Sender: FDA-Public Use
  Company Number: BR-ROCHE-800898

PATIENT
  Sex: Male
  Weight: 86 kg

DRUGS (4)
  1. AVASTIN [Suspect]
     Route: 042
     Dates: start: 20091028
  2. XELODA [Suspect]
     Dosage: ROUTE OF ADMINISTRATION REPORTED AS VO
     Route: 050
     Dates: start: 20100729
  3. AVASTIN [Suspect]
     Route: 042
     Dates: start: 20100901, end: 20110825
  4. XELODA [Suspect]
     Dosage: ROUTE OF ADMINISTRATION REPORTED AS VO
     Route: 050
     Dates: start: 20100901, end: 20110825

REACTIONS (6)
  - BLOOD DISORDER [None]
  - ABDOMINAL PAIN [None]
  - GASTROINTESTINAL OEDEMA [None]
  - MOUTH HAEMORRHAGE [None]
  - EPISTAXIS [None]
  - INTESTINAL PERFORATION [None]
